FAERS Safety Report 18945659 (Version 1)
Quarter: 2021Q1

REPORT INFORMATION
  Report Type: Spontaneous
  Country: US (occurrence: US)
  Receive Date: 20210226
  Receipt Date: 20210226
  Transmission Date: 20210420
  Serious: No
  Sender: FDA-Public Use
  Company Number: US-RECORDATI RARE DISEASES INC.-2020003795

PATIENT
  Sex: Female

DRUGS (1)
  1. DESOXYN [Suspect]
     Active Substance: METHAMPHETAMINE HYDROCHLORIDE
     Indication: ATTENTION DEFICIT HYPERACTIVITY DISORDER
     Dosage: 5 MILLIGRAM, TABLETS
     Route: 065

REACTIONS (1)
  - Therapy interrupted [Unknown]
